FAERS Safety Report 7951422-3 (Version None)
Quarter: 2011Q4

REPORT INFORMATION
  Report Type: 
  Country: None (occurrence: None)
  Receive Date: 20111201
  Receipt Date: 20111128
  Transmission Date: 20120403
  Serious: Yes (Other)
  Sender: FDA-Public Use
  Company Number: US-VERTEX PHARMACEUTICALS INC.-AE-2011-002447

PATIENT
  Age: 54 Year
  Sex: Female

DRUGS (5)
  1. INCIVEK [Suspect]
     Indication: HEPATITIS C
  2. PEGINTERFERON ALFA-2A [Concomitant]
     Indication: HEPATITIS C
  3. ACETAMINOPHEN [Concomitant]
  4. RIBAVIRIN [Concomitant]
     Indication: HEPATITIS C
  5. IBUPROFEN [Concomitant]

REACTIONS (1)
  - ANAEMIA [None]
